FAERS Safety Report 7087546-5 (Version None)
Quarter: 2010Q4

REPORT INFORMATION
  Report Type: 
  Country: None (occurrence: None)
  Receive Date: 20101108
  Receipt Date: 20101027
  Transmission Date: 20110411
  Serious: No
  Sender: FDA-Public Use
  Company Number: US-BIOGENIDEC-2010BI038179

PATIENT
  Sex: Female

DRUGS (1)
  1. TYSABRI [Suspect]
     Indication: MULTIPLE SCLEROSIS
     Route: 042
     Dates: start: 20080903, end: 20101013

REACTIONS (6)
  - BACK PAIN [None]
  - DYSURIA [None]
  - LIBIDO DECREASED [None]
  - PAIN IN EXTREMITY [None]
  - VAGINAL DISCHARGE [None]
  - WEIGHT INCREASED [None]
